FAERS Safety Report 24621315 (Version 1)
Quarter: 2024Q4

REPORT INFORMATION
  Report Type: Spontaneous
  Country: GB (occurrence: GB)
  Receive Date: 20241114
  Receipt Date: 20241114
  Transmission Date: 20250114
  Serious: Yes (Hospitalization)
  Sender: VERTEX
  Company Number: GB-VERTEX PHARMACEUTICALS-2023-019455

PATIENT
  Sex: Female

DRUGS (3)
  1. ELEXACAFTOR\IVACAFTOR\TEZACAFTOR [Suspect]
     Active Substance: ELEXACAFTOR\IVACAFTOR\TEZACAFTOR
     Indication: Cystic fibrosis
     Dosage: 1 TABLET (75 MG IVACAFTOR, 50 MG TEZACAFTOR AND 100 MG ELEXACAFTOR) IN THE MORNING
     Route: 048
  2. ELEXACAFTOR\IVACAFTOR\TEZACAFTOR [Suspect]
     Active Substance: ELEXACAFTOR\IVACAFTOR\TEZACAFTOR
     Dosage: 75MG IVACAFTOR/50MG TEZACAFTOR/100MG ELEXACAFTOR, 2 TAB IN  AM
     Route: 048
  3. KALYDECO [Suspect]
     Active Substance: IVACAFTOR
     Indication: Cystic fibrosis
     Dosage: 150 MILLIGRAM, QD
     Route: 048

REACTIONS (2)
  - Brief psychotic disorder, with postpartum onset [Recovering/Resolving]
  - Exposure during pregnancy [Unknown]
